FAERS Safety Report 8920769 (Version 1)
Quarter: 2012Q4

REPORT INFORMATION
  Report Type: 
  Country: US (occurrence: US)
  Receive Date: 20121121
  Receipt Date: 20121121
  Transmission Date: 20130627
  Serious: Yes (Other)
  Sender: FDA-Public Use
  Company Number: US-PAR PHARMACEUTICAL, INC-2012SCPR004723

PATIENT
  Sex: Female
  Weight: 95.24 kg

DRUGS (11)
  1. METOCLOPRAMIDE [Suspect]
     Indication: PRODUCT USED FOR UNKNOWN INDICATION
     Dosage: 10 mg, Unknown
     Route: 065
     Dates: start: 20081124, end: 2009
  2. AMITRIPTYLINE [Concomitant]
     Indication: PRODUCT USED FOR UNKNOWN INDICATION
     Dosage: UNK, Unknown
     Route: 065
  3. BACLOFEN [Concomitant]
     Indication: PRODUCT USED FOR UNKNOWN INDICATION
     Dosage: UNK, Unknown
     Route: 065
  4. COMPAZINE                          /00013302/ [Concomitant]
     Indication: PRODUCT USED FOR UNKNOWN INDICATION
     Dosage: UNK, Unknown
     Route: 065
  5. DIVALPROEX [Concomitant]
     Indication: PRODUCT USED FOR UNKNOWN INDICATION
     Dosage: UNK, Unknown
     Route: 065
  6. DOXEPIN [Concomitant]
     Indication: PRODUCT USED FOR UNKNOWN INDICATION
     Dosage: UNK, Unknown
     Route: 065
  7. EFFEXOR [Concomitant]
     Indication: PRODUCT USED FOR UNKNOWN INDICATION
     Dosage: UNK, Unknown
     Route: 065
  8. LEXAPRO [Concomitant]
     Indication: PRODUCT USED FOR UNKNOWN INDICATION
     Dosage: UNK, Unknown
     Route: 065
  9. PREVACID [Concomitant]
     Indication: PRODUCT USED FOR UNKNOWN INDICATION
     Dosage: UNK, Unknown
     Route: 065
  10. PROCHLORPERAZINE [Concomitant]
     Indication: PRODUCT USED FOR UNKNOWN INDICATION
     Dosage: UNK, Unknown
     Route: 065
  11. TRIAMTERENE [Concomitant]
     Indication: PRODUCT USED FOR UNKNOWN INDICATION
     Dosage: UNK, Unknown
     Route: 065

REACTIONS (23)
  - Lacunar infarction [Unknown]
  - Cerebral small vessel ischaemic disease [Unknown]
  - Tremor [Unknown]
  - Resting tremor [Unknown]
  - Stress [Unknown]
  - Anxiety [Unknown]
  - Fall [Unknown]
  - Headache [Unknown]
  - Choking [Unknown]
  - Pain in extremity [Unknown]
  - Nausea [Unknown]
  - Dystonia [Unknown]
  - Writer^s cramp [Unknown]
  - Torticollis [Unknown]
  - Bradykinesia [Unknown]
  - Akathisia [Unknown]
  - Parkinsonism [Unknown]
  - Tardive dyskinesia [Unknown]
  - Tongue paralysis [Unknown]
  - Muscle disorder [Unknown]
  - Muscle rigidity [Unknown]
  - Shoulder deformity [Unknown]
  - Dyskinesia [Unknown]
